FAERS Safety Report 5134190-2 (Version None)
Quarter: 2006Q4

REPORT INFORMATION
  Report Type: 
  Country: None (occurrence: None)
  Receive Date: 20061019
  Receipt Date: 20061002
  Transmission Date: 20070319
  Serious: Yes (Hospitalization)
  Sender: FDA-Public Use
  Company Number: NL200609000024

PATIENT
  Age: 63 Year
  Sex: Male

DRUGS (5)
  1. CYMBALTA [Suspect]
     Dosage: 30 MG, DAILY (1/D),; 30 MG, 2/D
  2. DOMPERIDONE (DOMPERIDONE) [Concomitant]
  3. MORPHINE [Concomitant]
  4. HALOPERIDOL [Concomitant]
  5. DUROGESIC /DEN/(FENTANYL) [Concomitant]

REACTIONS (2)
  - DELIRIUM [None]
  - OVERDOSE [None]
